FAERS Safety Report 23581015 (Version 1)
Quarter: 2024Q1

REPORT INFORMATION
  Report Type: Spontaneous
  Country: US (occurrence: None)
  Receive Date: 20240229
  Receipt Date: 20240229
  Transmission Date: 20240409
  Serious: Yes (Death)
  Sender: FDA-Public Use
  Company Number: None

PATIENT
  Age: 48 Year
  Sex: Female
  Weight: 99.3 kg

DRUGS (1)
  1. OMNIPAQUE [Suspect]
     Active Substance: IOHEXOL
     Indication: Contrast media deposition
     Route: 042

REACTIONS (7)
  - Contrast media reaction [None]
  - Hyperventilation [None]
  - Anxiety [None]
  - Dyspnoea [None]
  - Dysphonia [None]
  - Pulse absent [None]
  - Hyperhidrosis [None]

NARRATIVE: CASE EVENT DATE: 20240206
